FAERS Safety Report 6295459-1 (Version None)
Quarter: 2009Q3

REPORT INFORMATION
  Report Type: 
  Country: None (occurrence: None)
  Receive Date: 20090803
  Receipt Date: 20090729
  Transmission Date: 20100115
  Serious: Yes (Death)
  Sender: FDA-Public Use
  Company Number: JP-ABBOTT-09P-087-0588597-00

PATIENT
  Age: 60 Year

DRUGS (3)
  1. CLARITH TAB [Suspect]
     Indication: SKIN INFECTION
     Route: 048
  2. WARFARIN SODIUM [Concomitant]
     Indication: SKIN INFECTION
     Route: 048
  3. STEROID [Concomitant]
     Indication: SKIN INFECTION
     Route: 048

REACTIONS (1)
  - CARDIAC FAILURE [None]
